FAERS Safety Report 23548915 (Version 1)
Quarter: 2024Q1

REPORT INFORMATION
  Report Type: Spontaneous
  Country: FR (occurrence: FR)
  Receive Date: 20240221
  Receipt Date: 20240221
  Transmission Date: 20240410
  Serious: Yes (Hospitalization)
  Sender: FDA-Public Use
  Company Number: None

PATIENT
  Age: 29 Year
  Sex: Male

DRUGS (3)
  1. LINEZOLID [Interacting]
     Active Substance: LINEZOLID
     Indication: Pneumocystis jirovecii pneumonia
     Dosage: UNK
     Route: 042
     Dates: start: 20231204, end: 20231222
  2. BACTRIM [Interacting]
     Active Substance: SULFAMETHOXAZOLE\TRIMETHOPRIM
     Indication: Pneumocystis jirovecii pneumonia
     Dosage: 1600 MG, THREE TIMES A DAY
     Route: 042
     Dates: start: 20231128, end: 20231218
  3. VALGANCICLOVIR HYDROCHLORIDE [Interacting]
     Active Substance: VALGANCICLOVIR HYDROCHLORIDE
     Indication: Cytomegalovirus infection
     Dosage: 900 MG, TWO TIMES A DAY
     Route: 048
     Dates: start: 20231204, end: 20231222

REACTIONS (3)
  - Drug interaction [Recovered/Resolved]
  - Pancytopenia [Recovered/Resolved]
  - Off label use [Unknown]

NARRATIVE: CASE EVENT DATE: 20231204
